FAERS Safety Report 4314550-X (Version None)
Quarter: 2004Q1

REPORT INFORMATION
  Report Type: 
  Country: None (occurrence: None)
  Receive Date: 20040309
  Receipt Date: 20030102
  Transmission Date: 20041129
  Serious: Yes (Hospitalization)
  Sender: FDA-Public Use
  Company Number: WAES 0301GBR00015

PATIENT
  Age: 84 Year
  Sex: Male

DRUGS (8)
  1. ACETAMINOPHEN AND CODEINE PHOSPHATE [Concomitant]
     Route: 048
  2. BENDROFLUMETHIAZIDE [Concomitant]
     Route: 048
  3. DECADRON [Suspect]
     Route: 048
  4. DIGOXIN [Concomitant]
     Route: 048
  5. LATANOPROST [Concomitant]
     Route: 047
  6. MORPHINE SULFATE [Concomitant]
     Route: 048
  7. NITRAZEPAM [Concomitant]
     Route: 048
  8. PREDNISOLONE [Suspect]
     Route: 048

REACTIONS (4)
  - ASTHENIA [None]
  - FALL [None]
  - HOARSENESS [None]
  - HYPERGLYCAEMIA [None]
